FAERS Safety Report 6875598-4 (Version None)
Quarter: 2010Q3

REPORT INFORMATION
  Report Type: 
  Country: None (occurrence: None)
  Receive Date: 20100727
  Receipt Date: 20100715
  Transmission Date: 20110219
  Serious: Yes (Death)
  Sender: FDA-Public Use
  Company Number: JP-JNJFOC-20090200720

PATIENT
  Sex: Male

DRUGS (5)
  1. DORIPENEM MONOHYDRATE [Suspect]
     Indication: GASTROENTERITIS
     Dosage: 0.25 G X 3
     Route: 041
  2. FLOMOX [Suspect]
     Indication: PRODUCT USED FOR UNKNOWN INDICATION
  3. CEFOTIAM HYDROCHLORIDE [Concomitant]
     Indication: GASTROENTERITIS
     Route: 065
  4. NORMAL SALINE [Concomitant]
     Indication: GASTROENTERITIS
     Dosage: 3X 100 G
  5. NORMAL SALINE [Concomitant]
     Dosage: 2X 100 G

REACTIONS (1)
  - INTERSTITIAL LUNG DISEASE [None]
